FAERS Safety Report 6885543-3 (Version None)
Quarter: 2010Q3

REPORT INFORMATION
  Report Type: 
  Country: None (occurrence: None)
  Receive Date: 20100729
  Receipt Date: 20080524
  Transmission Date: 20110219
  Serious: No
  Sender: FDA-Public Use
  Company Number: US-PFIZER INC-2008045777

PATIENT
  Age: 54 Year
  Sex: Female
  Weight: 59.09 kg

DRUGS (3)
  1. CELEBREX [Suspect]
     Indication: OSTEOARTHRITIS
     Dates: start: 20080501, end: 20080501
  2. GLUCOSAMINE [Concomitant]
  3. ACETAMINOPHEN [Concomitant]

REACTIONS (1)
  - PARAESTHESIA [None]
